FAERS Safety Report 13926186 (Version 2)
Quarter: 2018Q1

REPORT INFORMATION
  Report Type: Spontaneous
  Country: US (occurrence: US)
  Receive Date: 20170831
  Receipt Date: 20180308
  Transmission Date: 20180508
  Serious: Yes (Other)
  Sender: FDA-Public Use
  Company Number: US-PFIZER INC-2017371615

PATIENT
  Age: 67 Year
  Sex: Female
  Weight: 66.22 kg

DRUGS (7)
  1. ALEVE [Concomitant]
     Active Substance: NAPROXEN SODIUM
     Indication: OSTEOARTHRITIS
     Dosage: 220 MG, EVERY 6 TO 8 HOURS
  2. CHONDROITIN W/GLUCOSAMINE [Concomitant]
     Indication: ARTHROPATHY
     Dosage: 2 DF, DAILY
  3. CALCIUM 600 PLUS VITAMIN D3 [Concomitant]
     Indication: VITAMIN D DEFICIENCY
     Dosage: 2 DF, DAILY
  4. TYLENOL ARTHRITIS PAIN [Concomitant]
     Active Substance: ACETAMINOPHEN
     Indication: OSTEOARTHRITIS
     Dosage: 650 MG, AS NEEDED
  5. AROMASIN [Suspect]
     Active Substance: EXEMESTANE
     Indication: BREAST CANCER
     Dosage: 25 MG, 1X/DAY (AFTER MEAL)
     Route: 048
  6. VITAMIN C WITH ROSE HIPS [Concomitant]
     Dosage: 1000 MG, DAILY
  7. VITAMIN D3 [Concomitant]
     Active Substance: CHOLECALCIFEROL
     Indication: ARTHROPATHY
     Dosage: 1000 IU, DAILY

REACTIONS (6)
  - Cataract [Unknown]
  - Weight increased [Unknown]
  - Sinus disorder [Unknown]
  - Malaise [Unknown]
  - Depression [Not Recovered/Not Resolved]
  - Stress [Unknown]

NARRATIVE: CASE EVENT DATE: 2017
